FAERS Safety Report 14492226 (Version 5)
Quarter: 2018Q2

REPORT INFORMATION
  Report Type: Report from Study
  Country: US (occurrence: US)
  Receive Date: 20180206
  Receipt Date: 20180509
  Transmission Date: 20180711
  Serious: Yes (Other)
  Sender: FDA-Public Use
  Company Number: US-PFIZER INC-2018036812

PATIENT
  Age: 87 Year
  Sex: Female

DRUGS (2)
  1. IBRANCE [Suspect]
     Active Substance: PALBOCICLIB
     Dosage: 100 MG, ONCE A DAY
     Route: 048
     Dates: start: 20180228, end: 20180410
  2. IBRANCE [Suspect]
     Active Substance: PALBOCICLIB
     Indication: BREAST CANCER METASTATIC
     Dosage: 125 MG, ONCE A DAY
     Route: 048
     Dates: start: 20180105, end: 20180221

REACTIONS (13)
  - Neoplasm progression [Not Recovered/Not Resolved]
  - Leukopenia [Unknown]
  - Dehydration [Unknown]
  - Pancytopenia [Unknown]
  - Weight decreased [Unknown]
  - Fluid retention [Unknown]
  - Decreased appetite [Not Recovered/Not Resolved]
  - Protein total decreased [Unknown]
  - Diarrhoea [Recovering/Resolving]
  - White blood cell count decreased [Unknown]
  - Fatigue [Unknown]
  - Bone pain [Recovering/Resolving]
  - Laboratory test abnormal [Not Recovered/Not Resolved]

NARRATIVE: CASE EVENT DATE: 2018
